FAERS Safety Report 7532083-4 (Version None)
Quarter: 2011Q2

REPORT INFORMATION
  Report Type: 
  Country: None (occurrence: None)
  Receive Date: 20110608
  Receipt Date: 20110603
  Transmission Date: 20111010
  Serious: No
  Sender: FDA-Public Use
  Company Number: US-PFIZER INC-2011121466

PATIENT
  Sex: Male
  Weight: 74.83 kg

DRUGS (1)
  1. ADVIL LIQUI-GELS [Suspect]
     Dosage: 600 MG, DAILY
     Route: 048
     Dates: start: 20110603

REACTIONS (2)
  - URTICARIA [None]
  - SWELLING FACE [None]
